FAERS Safety Report 6679537-0 (Version None)
Quarter: 2010Q2

REPORT INFORMATION
  Report Type: 
  Country: None (occurrence: None)
  Receive Date: 20100413
  Receipt Date: 20100405
  Transmission Date: 20101027
  Serious: Yes (Disabling)
  Sender: FDA-Public Use
  Company Number: GXKR2010JP03925

PATIENT
  Age: 78 Year
  Sex: Female

DRUGS (2)
  1. ESANBUTOL (NGX) [Suspect]
     Dosage: 250 MG, UNK
     Route: 048
     Dates: start: 20071201, end: 20080301
  2. RIMACTANE [Suspect]
     Dosage: UNK
     Route: 048
     Dates: start: 20071201, end: 20080301

REACTIONS (2)
  - GAIT DISTURBANCE [None]
  - VISUAL IMPAIRMENT [None]
